FAERS Safety Report 7669867-8 (Version None)
Quarter: 2011Q3

REPORT INFORMATION
  Report Type: 
  Country: None (occurrence: None)
  Receive Date: 20110808
  Receipt Date: 20110804
  Transmission Date: 20111222
  Serious: Yes (Death)
  Sender: FDA-Public Use
  Company Number: DE-ASTRAZENECA-2011SE46682

PATIENT
  Age: 21 Year
  Sex: Male

DRUGS (2)
  1. PROPOFOL [Suspect]
     Indication: SEDATIVE THERAPY
     Dosage: 3 MG/KG BODY WEIGHT/HOUR
     Route: 042
  2. MORE THAN 20 DRUGS [Suspect]

REACTIONS (2)
  - HYPERTHERMIA [None]
  - RHABDOMYOLYSIS [None]
